FAERS Safety Report 17973570 (Version 2)
Quarter: 2020Q3

REPORT INFORMATION
  Report Type: Spontaneous
  Country: US (occurrence: US)
  Receive Date: 20200702
  Receipt Date: 20200714
  Transmission Date: 20201103
  Serious: No
  Sender: FDA-Public Use
  Company Number: US-009507513-2006USA010277

PATIENT
  Age: 13 Year
  Sex: Female

DRUGS (5)
  1. NEXPLANON [Suspect]
     Active Substance: ETONOGESTREL
     Indication: STATUS EPILEPTICUS
  2. NEXPLANON [Suspect]
     Active Substance: ETONOGESTREL
     Indication: EPILEPSY
     Dosage: 68 MILLIGRAM, ONE TIME INSERTION IN LEFT ARM
     Route: 059
     Dates: start: 20191017
  3. NEXPLANON [Suspect]
     Active Substance: ETONOGESTREL
     Indication: MENSTRUAL CYCLE MANAGEMENT
  4. NEXPLANON [Suspect]
     Active Substance: ETONOGESTREL
     Indication: PARTIAL SEIZURES
  5. NEXPLANON [Suspect]
     Active Substance: ETONOGESTREL
     Indication: CONTRACEPTION

REACTIONS (2)
  - Weight increased [Unknown]
  - Product use in unapproved indication [Unknown]

NARRATIVE: CASE EVENT DATE: 20191017
